FAERS Safety Report 5064997-1 (Version None)
Quarter: 2006Q3

REPORT INFORMATION
  Report Type: 
  Country: None (occurrence: None)
  Receive Date: 20060728
  Receipt Date: 20060718
  Transmission Date: 20061208
  Serious: Yes (Hospitalization)
  Sender: FDA-Public Use
  Company Number: JP-ABBOTT-06P-087-0338438-00

PATIENT
  Sex: Male

DRUGS (10)
  1. NORVIR [Suspect]
     Indication: HIV INFECTION
     Route: 048
     Dates: start: 20060128, end: 20060214
  2. NORVIR [Suspect]
     Route: 048
     Dates: start: 20060214
  3. ZIDOVUDINE [Suspect]
     Indication: HIV INFECTION
     Route: 048
     Dates: start: 20060117
  4. EFAVIRENZ [Suspect]
     Indication: HIV INFECTION
     Route: 048
     Dates: start: 20060117, end: 20060128
  5. FOSAMPRENAVIR [Suspect]
     Indication: HIV INFECTION
     Route: 048
     Dates: start: 20060128, end: 20060213
  6. EMTRICITABIN/TENOFOVIR [Concomitant]
     Indication: HIV INFECTION
     Route: 048
     Dates: start: 20060117
  7. ATAZANAVIR [Concomitant]
     Indication: HIV INFECTION
     Route: 048
     Dates: start: 20060214
  8. PREDNISOLONE [Concomitant]
     Indication: PNEUMOCYSTIS JIROVECI PNEUMONIA
     Route: 048
     Dates: start: 20060129, end: 20060203
  9. PREDNISOLONE [Concomitant]
     Route: 048
     Dates: start: 20060204, end: 20060205
  10. PREDNISOLONE [Concomitant]
     Route: 048
     Dates: start: 20060206, end: 20060220

REACTIONS (2)
  - ANAEMIA MACROCYTIC [None]
  - TOXIC SKIN ERUPTION [None]
